FAERS Safety Report 14695546 (Version 1)
Quarter: 2018Q1

REPORT INFORMATION
  Report Type: Spontaneous
  Country: US (occurrence: US)
  Receive Date: 20180327
  Receipt Date: 20180327
  Transmission Date: 20180509
  Serious: Yes (Hospitalization)
  Sender: FDA-Public Use
  Company Number: None

PATIENT
  Age: 69 Year
  Sex: Male

DRUGS (10)
  1. METOPROLOL TARTRATE. [Concomitant]
     Active Substance: METOPROLOL TARTRATE
  2. AZACITIDINE. [Suspect]
     Active Substance: AZACITIDINE
     Indication: LEUKAEMIA
     Route: 042
     Dates: start: 20171226, end: 20171231
  3. ATORVASTATIN [Concomitant]
     Active Substance: ATORVASTATIN
  4. CETIRIZINE [Concomitant]
     Active Substance: CETIRIZINE HYDROCHLORIDE
  5. TRAMADOL. [Concomitant]
     Active Substance: TRAMADOL
  6. LOSARTAN. [Concomitant]
     Active Substance: LOSARTAN
  7. MULTIVITAMIN [Concomitant]
     Active Substance: VITAMINS
  8. SPIRONOLACTONE. [Concomitant]
     Active Substance: SPIRONOLACTONE
  9. MORPHINE [Concomitant]
     Active Substance: MORPHINE
  10. ALLOPURINOL. [Concomitant]
     Active Substance: ALLOPURINOL

REACTIONS (9)
  - Withdrawal syndrome [None]
  - Headache [None]
  - Pulmonary embolism [None]
  - Platelet count decreased [None]
  - Dyspnoea [None]
  - Disease progression [None]
  - Hypoxia [None]
  - Leukocytosis [None]
  - Pneumonitis [None]

NARRATIVE: CASE EVENT DATE: 20171227
